FAERS Safety Report 5000082-2 (Version None)
Quarter: 2006Q2

REPORT INFORMATION
  Report Type: 
  Country: None (occurrence: None)
  Receive Date: 20060501
  Receipt Date: 20060419
  Transmission Date: 20061013
  Serious: Yes (Hospitalization)
  Sender: FDA-Public Use
  Company Number: 2006052924

PATIENT
  Age: 75 Year
  Sex: Male
  Weight: 77 kg

DRUGS (3)
  1. ESTRACYT (ESTRAMUSTINE PHOSPHATE SODIUM) [Suspect]
     Indication: ILL-DEFINED DISORDER
     Dosage: 840 MG (280 MG, 3 IN 1 D), ORAL
     Route: 048
     Dates: start: 20060214, end: 20060307
  2. TAXOTERE [Suspect]
     Indication: ILL-DEFINED DISORDER
     Dosage: 75 MG/M2 (75 MG/M2, 1 IN 21 D), INTRAVENOUS
     Route: 042
     Dates: start: 20060214
  3. ZOMETA [Suspect]
     Indication: ILL-DEFINED DISORDER
     Dosage: 4 MG, INTRAVENOUS
     Route: 042
     Dates: start: 20060214, end: 20060307

REACTIONS (7)
  - ASTHENIA [None]
  - DIARRHOEA [None]
  - GENERAL PHYSICAL HEALTH DETERIORATION [None]
  - LEUKOPENIA [None]
  - NAUSEA [None]
  - NEUTROPENIA [None]
  - VOMITING [None]
